FAERS Safety Report 4497604-7 (Version None)
Quarter: 2004Q4

REPORT INFORMATION
  Report Type: 
  Country: None (occurrence: None)
  Receive Date: 20041105
  Receipt Date: 20041026
  Transmission Date: 20050328
  Serious: Yes (Other)
  Sender: FDA-Public Use
  Company Number: US-JNJFOC-20041008061

PATIENT
  Age: 34 Year
  Sex: Female

DRUGS (5)
  1. RISPERDAL CONSTA [Suspect]
     Route: 030
  2. RISPERDAL [Suspect]
     Route: 049
  3. RISPERDAL [Suspect]
     Route: 049
  4. ATIVAN [Concomitant]
  5. RESTORIL [Concomitant]

REACTIONS (3)
  - DRUG EFFECT DECREASED [None]
  - HEPATITIS CHOLESTATIC [None]
  - HEPATOTOXICITY [None]
